FAERS Safety Report 7039748-1 (Version None)
Quarter: 2010Q3

REPORT INFORMATION
  Report Type: 
  Country: None (occurrence: None)
  Receive Date: 20100929
  Receipt Date: 20100726
  Transmission Date: 20110219
  Serious: No
  Sender: FDA-Public Use
  Company Number: US-WYE-H16479110

PATIENT
  Age: 36 Year
  Sex: Male
  Weight: 115.32 kg

DRUGS (2)
  1. PRISTIQ [Suspect]
     Indication: DEPRESSION
     Route: 048
     Dates: start: 20100625
  2. XANAC (ALPRAZOLAM) [Concomitant]

REACTIONS (2)
  - DRUG SCREEN FALSE POSITIVE [None]
  - IMPAIRED DRIVING ABILITY [None]
